FAERS Safety Report 6510900-4 (Version None)
Quarter: 2009Q4

REPORT INFORMATION
  Report Type: 
  Country: None (occurrence: None)
  Receive Date: 20091222
  Receipt Date: 20090129
  Transmission Date: 20100525
  Serious: No
  Sender: FDA-Public Use
  Company Number: US-ASTRAZENECA-2009UW02768

PATIENT
  Age: 71 Year
  Sex: Female
  Weight: 102.1 kg

DRUGS (5)
  1. CRESTOR [Suspect]
     Route: 048
     Dates: start: 20081101
  2. VASOTEC [Concomitant]
  3. ALLOPURINOL [Concomitant]
  4. INSULIN [Concomitant]
  5. TECKTURNA [Concomitant]

REACTIONS (1)
  - OEDEMA PERIPHERAL [None]
